FAERS Safety Report 8174607 (Version 4)
Quarter: 2012Q4

REPORT INFORMATION
  Report Type: 
  Country: US (occurrence: US)
  Receive Date: 20111010
  Receipt Date: 20121219
  Transmission Date: 20130627
  Serious: Yes (Death, Other)
  Sender: FDA-Public Use
  Company Number: US-ASTRAZENECA-2011SE58838

PATIENT
  Age: 64 Year
  Sex: Male

DRUGS (3)
  1. CRESTOR [Suspect]
     Route: 048
  2. PRAVACHOL [Concomitant]
  3. CHEMOTHERAPY [Concomitant]

REACTIONS (4)
  - Death [Fatal]
  - Brain neoplasm malignant [Unknown]
  - Drug dose omission [Unknown]
  - Intentional drug misuse [Unknown]
